FAERS Safety Report 14251380 (Version 1)
Quarter: 2017Q4

REPORT INFORMATION
  Report Type: Spontaneous
  Country: CA (occurrence: CA)
  Receive Date: 20171205
  Receipt Date: 20171205
  Transmission Date: 20180321
  Serious: Yes (Other)
  Sender: FDA-Public Use
  Company Number: CA-APOTEX-2017AP021871

PATIENT
  Age: 67 Year
  Sex: Female

DRUGS (1)
  1. APO-DICLO [Suspect]
     Active Substance: DICLOFENAC SODIUM
     Indication: OSTEOARTHRITIS
     Dosage: UNK
     Route: 065

REACTIONS (2)
  - Biliary cirrhosis primary [Unknown]
  - Tooth loss [Unknown]
